FAERS Safety Report 10362687 (Version 1)
Quarter: 2014Q3

REPORT INFORMATION
  Report Type: Spontaneous
  Country: US (occurrence: None)
  Receive Date: 20140804
  Receipt Date: 20140804
  Transmission Date: 20150326
  Serious: Yes (Life-Threatening, Hospitalization)
  Sender: FDA-Public Use
  Company Number: None

PATIENT
  Age: 26 Year
  Sex: Female
  Weight: 53.98 kg

DRUGS (2)
  1. CIMIZA [Concomitant]
  2. CIMZIA [Suspect]
     Active Substance: CERTOLIZUMAB PEGOL
     Route: 030

REACTIONS (4)
  - Pyrexia [None]
  - Clostridial infection [None]
  - Pancytopenia [None]
  - Retinal haemorrhage [None]

NARRATIVE: CASE EVENT DATE: 20140627
